FAERS Safety Report 4847108-4 (Version None)
Quarter: 2005Q4

REPORT INFORMATION
  Report Type: 
  Country: None (occurrence: None)
  Receive Date: 20051205
  Receipt Date: 20051122
  Transmission Date: 20060501
  Serious: Yes (Hospitalization, Other)
  Sender: FDA-Public Use
  Company Number: 2005159613

PATIENT
  Age: 61 Year
  Sex: Female
  Weight: 70.7611 kg

DRUGS (6)
  1. LYRICA [Suspect]
     Indication: DIABETIC NEUROPATHY
     Dosage: 100 MG (100 MG, 1 IN 1 D), ORAL
     Route: 048
     Dates: start: 20051101, end: 20051116
  2. VERAPAMIL [Concomitant]
  3. ALLOPURINOL [Concomitant]
  4. AMBIEN [Concomitant]
  5. TIMOLOL MALEATE [Concomitant]
  6. HYDROCHLOROTHIAZIDE [Concomitant]

REACTIONS (4)
  - MUSCLE TWITCHING [None]
  - PULMONARY OEDEMA [None]
  - TREMOR [None]
  - WEIGHT FLUCTUATION [None]
